FAERS Safety Report 5856174-9 (Version None)
Quarter: 2008Q3

REPORT INFORMATION
  Report Type: 
  Country: None (occurrence: None)
  Receive Date: 20080825
  Receipt Date: 20080821
  Transmission Date: 20090109
  Serious: Yes (Other)
  Sender: FDA-Public Use
  Company Number: A0714734A

PATIENT
  Age: 37 Year
  Sex: Male
  Weight: 207.7 kg

DRUGS (6)
  1. AVANDIA [Suspect]
     Dosage: 8MG PER DAY
     Route: 048
     Dates: start: 20010101
  2. GLUCOPHAGE [Concomitant]
  3. METFORMIN [Concomitant]
  4. STARLIX [Concomitant]
  5. LIPITOR [Concomitant]
     Dates: start: 20050101
  6. FUROSEMIDE [Concomitant]

REACTIONS (5)
  - ANXIETY [None]
  - CARDIAC FAILURE CONGESTIVE [None]
  - HEART INJURY [None]
  - MYOCARDIAL INFARCTION [None]
  - PAIN [None]
